FAERS Safety Report 19879011 (Version 1)
Quarter: 2021Q3

REPORT INFORMATION
  Report Type: Report from Study
  Country: None (occurrence: US)
  Receive Date: 20210924
  Receipt Date: 20210924
  Transmission Date: 20211014
  Serious: Yes (Hospitalization)
  Sender: FDA-Public Use
  Company Number: US-ABBVIE-21K-163-4090172-00

PATIENT
  Age: 59 Year
  Sex: Female

DRUGS (3)
  1. MODERNA COVID?19 VACCINE [Suspect]
     Active Substance: CX-024414
     Route: 030
     Dates: start: 20210426, end: 20210426
  2. MODERNA COVID?19 VACCINE [Suspect]
     Active Substance: CX-024414
     Indication: COVID-19 IMMUNISATION
     Route: 030
     Dates: start: 20210326, end: 20210326
  3. HUMIRA [Suspect]
     Active Substance: ADALIMUMAB
     Indication: PSORIATIC ARTHROPATHY
     Dosage: CITRATE FREE
     Route: 058

REACTIONS (9)
  - Illness [Not Recovered/Not Resolved]
  - Pre-existing condition improved [Recovering/Resolving]
  - Nausea [Recovered/Resolved]
  - Fall [Recovered/Resolved]
  - Vaccination site erythema [Recovered/Resolved]
  - Vaccination complication [Recovered/Resolved]
  - Loss of consciousness [Recovered/Resolved]
  - Pyrexia [Recovered/Resolved]
  - Therapeutic response unexpected [Recovering/Resolving]

NARRATIVE: CASE EVENT DATE: 20210326
